FAERS Safety Report 19997754 (Version 1)
Quarter: 2021Q4

REPORT INFORMATION
  Report Type: Spontaneous
  Country: US (occurrence: US)
  Receive Date: 20211026
  Receipt Date: 20211026
  Transmission Date: 20220303
  Serious: No
  Sender: FDA-Public Use
  Company Number: US-ORGANON-O2110USA001263

PATIENT
  Age: 30 Year
  Sex: Female

DRUGS (3)
  1. CELESTONE SOLUSPAN [Suspect]
     Active Substance: BETAMETHASONE ACETATE\BETAMETHASONE SODIUM PHOSPHATE
     Dosage: UNK
  2. INDOMETHACIN [Concomitant]
     Active Substance: INDOMETHACIN
     Indication: Tocolysis
     Dosage: UNK
  3. PENICILLIN [Concomitant]
     Active Substance: PENICILLIN
     Indication: Antibiotic prophylaxis
     Dosage: UNK

REACTIONS (1)
  - Maternal exposure during pregnancy [Recovered/Resolved]
